FAERS Safety Report 9501025 (Version 2)
Quarter: 2013Q4

REPORT INFORMATION
  Report Type: Spontaneous
  Country: US (occurrence: US)
  Receive Date: 20130905
  Receipt Date: 20131004
  Transmission Date: 20140711
  Serious: Yes (Death, Other)
  Sender: FDA-Public Use
  Company Number: US-INCYTE CORPORATION-2013IN001980

PATIENT
  Age: 74 Year
  Sex: Male
  Weight: 95.24 kg

DRUGS (12)
  1. JAKAFI [Suspect]
     Indication: MYELOFIBROSIS
     Dosage: 15 MG, BID
     Route: 048
     Dates: start: 20120626, end: 20130820
  2. JAKAFI [Suspect]
     Indication: MYELOPROLIFERATIVE DISORDER
  3. FUROSEMIDE [Concomitant]
     Dosage: 1 DF, QD
     Route: 048
  4. POTASSIUM CHLORIDE [Concomitant]
     Dosage: 1 DF, QD
     Route: 048
  5. HYDROXYUREA [Concomitant]
     Dosage: 500 MG, THREE TIMES A WEEK
     Route: 048
  6. PREDNISONE [Concomitant]
     Dosage: 10 MG, QD
     Route: 048
  7. WARFARIN [Concomitant]
     Dosage: 2-3 DAILY, AS DIRECTED
  8. NEBIVOLOL [Concomitant]
     Dosage: 1 DF, QD
     Route: 048
  9. ACETAMINOPHEN [Concomitant]
     Dosage: 1-2 TABLETS EVERY 4 HOURS, AS NEEDED
     Route: 048
  10. SILDENAFIL [Concomitant]
     Dosage: 2 DF, TID
     Route: 048
  11. NICOTINIC ACID [Concomitant]
     Dosage: 1000 MG, BID
     Route: 048
  12. DOXYLAMINE [Concomitant]
     Dosage: AS NEEDED
     Route: 048

REACTIONS (6)
  - Death [Fatal]
  - General physical health deterioration [Unknown]
  - Dyspnoea [Unknown]
  - Asthenia [Unknown]
  - Incontinence [Unknown]
  - Activities of daily living impaired [Unknown]
